FAERS Safety Report 17415340 (Version 2)
Quarter: 2020Q1

REPORT INFORMATION
  Report Type: Spontaneous
  Country: FR (occurrence: FR)
  Receive Date: 20200213
  Receipt Date: 20200218
  Transmission Date: 20200409
  Serious: Yes (Other)
  Sender: FDA-Public Use
  Company Number: FR-ALLERGAN-2006939US

PATIENT
  Sex: Female

DRUGS (4)
  1. VISKEN [Suspect]
     Active Substance: PINDOLOL
     Indication: HYPERTENSION
     Dosage: 15
  2. DIAMOX SEQUELS [Suspect]
     Active Substance: ACETAZOLAMIDE
     Indication: GLAUCOMA
  3. GANFORT [Suspect]
     Active Substance: BIMATOPROST\TIMOLOL
     Indication: GLAUCOMA
     Dosage: 1 GTT, QD
     Route: 047
  4. GLYCEROL [Suspect]
     Active Substance: GLYCERIN
     Indication: PRODUCT USED FOR UNKNOWN INDICATION

REACTIONS (8)
  - Alopecia [Unknown]
  - Diarrhoea [Unknown]
  - Vision blurred [Unknown]
  - Suicidal ideation [Unknown]
  - Visual acuity reduced [Unknown]
  - Skin discolouration [Unknown]
  - Head discomfort [Recovered/Resolved]
  - Ocular hyperaemia [Recovered/Resolved]
